FAERS Safety Report 16994288 (Version 2)
Quarter: 2020Q1

REPORT INFORMATION
  Report Type: Report from Study
  Country: AT (occurrence: AT)
  Receive Date: 20191105
  Receipt Date: 20200212
  Transmission Date: 20200409
  Serious: Yes (Other)
  Sender: FDA-Public Use
  Company Number: NVSC2019AT020882

PATIENT
  Age: 19 Year
  Sex: Male

DRUGS (1)
  1. GILENYA [Suspect]
     Active Substance: FINGOLIMOD HYDROCHLORIDE
     Indication: MULTIPLE SCLEROSIS
     Dosage: 0.5 MG, QD
     Route: 048
     Dates: start: 20151007

REACTIONS (1)
  - Multiple sclerosis relapse [Recovered/Resolved]

NARRATIVE: CASE EVENT DATE: 20160326
